FAERS Safety Report 17211572 (Version 1)
Quarter: 2019Q4

REPORT INFORMATION
  Report Type: Spontaneous
  Country: GB (occurrence: GB)
  Receive Date: 20191229
  Receipt Date: 20191229
  Transmission Date: 20200122
  Serious: Yes (Other)
  Sender: FDA-Public Use
  Company Number: GB-TEVA-2019-GB-1158501

PATIENT
  Age: 69 Year
  Sex: Female
  Weight: 61 kg

DRUGS (5)
  1. AMOXICILLIN. [Concomitant]
     Active Substance: AMOXICILLIN
  2. INDAPAMIDE. [Concomitant]
     Active Substance: INDAPAMIDE
  3. BISOPROLOL FUMARATE. [Concomitant]
     Active Substance: BISOPROLOL FUMARATE
  4. ROSUVASTATIN. [Concomitant]
     Active Substance: ROSUVASTATIN
  5. METRONIDAZOLE. [Suspect]
     Active Substance: METRONIDAZOLE
     Indication: CHOLECYSTECTOMY
     Dosage: 1200 MG
     Route: 048
     Dates: start: 20191121, end: 20191124

REACTIONS (1)
  - Blindness transient [Recovering/Resolving]

NARRATIVE: CASE EVENT DATE: 20191123
